FAERS Safety Report 8421811-1 (Version None)
Quarter: 2012Q2

REPORT INFORMATION
  Report Type: 
  Country: None (occurrence: None)
  Receive Date: 20120601
  Receipt Date: 20120509
  Transmission Date: 20120825
  Serious: Yes (Other)
  Sender: FDA-Public Use
  Company Number: DKLU1080345

PATIENT

DRUGS (1)
  1. NEOPROFEN [Suspect]
     Indication: PATENT DUCTUS ARTERIOSUS
     Dosage: INTRAVENOUS DRIP
     Route: 041
     Dates: start: 20100101

REACTIONS (1)
  - BRONCHOPULMONARY DYSPLASIA [None]
